FAERS Safety Report 10301736 (Version 3)
Quarter: 2015Q1

REPORT INFORMATION
  Report Type: Spontaneous
  Country: US (occurrence: US)
  Receive Date: 20140714
  Receipt Date: 20150112
  Transmission Date: 20150720
  Serious: Yes (Life-Threatening, Hospitalization)
  Sender: FDA-Public Use
  Company Number: US-BAYER-2014-104769

PATIENT
  Age: 37 Year
  Sex: Female
  Weight: 70.75 kg

DRUGS (2)
  1. MIRENA [Suspect]
     Active Substance: LEVONORGESTREL
     Indication: CONTRACEPTION
     Dosage: 20 MCG/24HR, CONT
     Dates: start: 2004, end: 2005
  2. MIRENA [Suspect]
     Active Substance: LEVONORGESTREL
     Indication: CONTRACEPTION
     Dosage: 20 MCG/24HR, CONT
     Route: 015
     Dates: start: 20080225, end: 20130913

REACTIONS (15)
  - Device failure [None]
  - Injury [None]
  - Anhedonia [None]
  - Emotional distress [None]
  - Medical device discomfort [None]
  - Depression [None]
  - Abdominal pain [None]
  - General physical health deterioration [None]
  - Pregnancy with contraceptive device [None]
  - Drug ineffective [None]
  - Device misuse [None]
  - Anxiety [None]
  - Procedural pain [None]
  - Uterine perforation [None]
  - Infection [None]

NARRATIVE: CASE EVENT DATE: 20130913
